FAERS Safety Report 24678221 (Version 2)
Quarter: 2024Q4

REPORT INFORMATION
  Report Type: Spontaneous
  Country: CA (occurrence: CA)
  Receive Date: 20241129
  Receipt Date: 20241226
  Transmission Date: 20250115
  Serious: Yes (Death, Life-Threatening, Hospitalization, Disabling, Other)
  Sender: ASTELLAS
  Company Number: CA-ASTELLAS-2024-AER-020964

PATIENT
  Age: 43 Year
  Sex: Female
  Weight: 96 kg

DRUGS (31)
  1. MYRBETRIQ [Suspect]
     Active Substance: MIRABEGRON
     Indication: Product used for unknown indication
     Dosage: 1 DOSAGE FORMS 1 EVERY 24 HOURS.
     Route: 065
  2. ACETAMINOPHEN\CODEINE PHOSPHATE [Suspect]
     Active Substance: ACETAMINOPHEN\CODEINE PHOSPHATE
     Indication: Rheumatoid arthritis
     Route: 065
  3. ACTEMRA [Suspect]
     Active Substance: TOCILIZUMAB
     Indication: Rheumatoid arthritis
     Route: 042
  4. ACTEMRA [Suspect]
     Active Substance: TOCILIZUMAB
     Route: 042
  5. ACTEMRA [Suspect]
     Active Substance: TOCILIZUMAB
     Route: 042
  6. ACTEMRA [Suspect]
     Active Substance: TOCILIZUMAB
     Route: 042
  7. ACTEMRA [Suspect]
     Active Substance: TOCILIZUMAB
     Route: 042
  8. ACTEMRA [Suspect]
     Active Substance: TOCILIZUMAB
     Route: 042
  9. ACTEMRA [Suspect]
     Active Substance: TOCILIZUMAB
     Route: 042
  10. ADALIMUMAB [Suspect]
     Active Substance: ADALIMUMAB
     Indication: Rheumatoid arthritis
     Route: 058
  11. AIMOVIG [Suspect]
     Active Substance: ERENUMAB\ERENUMAB-AOOE
     Indication: Migraine
     Route: 065
  12. ALENDRONATE SODIUM [Suspect]
     Active Substance: ALENDRONATE SODIUM
     Indication: Rheumatoid arthritis
     Route: 065
  13. ALENDRONIC ACID [Suspect]
     Active Substance: ALENDRONIC ACID
     Indication: Rheumatoid arthritis
     Route: 048
  14. APREMILAST [Suspect]
     Active Substance: APREMILAST
     Indication: Product used for unknown indication
     Route: 065
  15. ARAVA [Suspect]
     Active Substance: LEFLUNOMIDE
     Indication: Rheumatoid arthritis
     Route: 048
  16. ATOMOXETINE HYDROCHLORIDE [Suspect]
     Active Substance: ATOMOXETINE HYDROCHLORIDE
     Indication: Migraine
     Route: 065
  17. BERINERT [Suspect]
     Active Substance: HUMAN C1-ESTERASE INHIBITOR
     Indication: Rheumatoid arthritis
     Route: 065
  18. BOTULINUM TOXIN TYPE A [Suspect]
     Active Substance: BOTULINUM TOXIN TYPE A
     Indication: Product used for unknown indication
     Dosage: POWDER FOR SOLUTION
     Route: 065
  19. CALCIUM ASCORBATE [Suspect]
     Active Substance: CALCIUM ASCORBATE
     Indication: Product used for unknown indication
     Route: 065
  20. CALCIUM CARBONATE [Suspect]
     Active Substance: CALCIUM CARBONATE
     Indication: Product used for unknown indication
     Route: 065
  21. CANDESARTAN [Suspect]
     Active Substance: CANDESARTAN
     Indication: Migraine
     Route: 048
  22. CERTOLIZUMAB PEGOL [Suspect]
     Active Substance: CERTOLIZUMAB PEGOL
     Indication: Psoriasis
     Route: 065
  23. CETIRIZINE HYDROCHLORIDE [Suspect]
     Active Substance: CETIRIZINE HYDROCHLORIDE
     Indication: Rheumatoid arthritis
     Route: 065
  24. CETIRIZINE HYDROCHLORIDE [Suspect]
     Active Substance: CETIRIZINE HYDROCHLORIDE
     Route: 065
  25. CETIRIZINE HYDROCHLORIDE [Suspect]
     Active Substance: CETIRIZINE HYDROCHLORIDE
     Route: 065
  26. CETIRIZINE HYDROCHLORIDE [Suspect]
     Active Substance: CETIRIZINE HYDROCHLORIDE
     Route: 016
  27. CHLORHEXIDINE GLUCONATE [Suspect]
     Active Substance: CHLORHEXIDINE GLUCONATE
     Indication: Product used for unknown indication
     Route: 065
  28. CHOLECALCIFEROL [Suspect]
     Active Substance: CHOLECALCIFEROL
     Indication: Product used for unknown indication
     Route: 065
  29. CIMZIA [Suspect]
     Active Substance: CERTOLIZUMAB PEGOL
     Indication: Rheumatoid arthritis
     Route: 058
  30. CIMZIA [Suspect]
     Active Substance: CERTOLIZUMAB PEGOL
     Route: 058
  31. CIMZIA [Suspect]
     Active Substance: CERTOLIZUMAB PEGOL
     Route: 058

REACTIONS (133)
  - Breast cancer stage III [Fatal]
  - Duodenal ulcer perforation [Fatal]
  - Liver injury [Fatal]
  - Breast cancer stage II [Fatal]
  - Epilepsy [Unknown]
  - Lower respiratory tract infection [Unknown]
  - Pemphigus [Unknown]
  - Pericarditis [Unknown]
  - Psoriatic arthropathy [Unknown]
  - Rheumatoid arthritis [Unknown]
  - Systemic lupus erythematosus [Unknown]
  - Type 2 diabetes mellitus [Unknown]
  - Delirium [Unknown]
  - Dislocation of vertebra [Unknown]
  - Hand deformity [Unknown]
  - Pneumonia [Unknown]
  - Pulmonary fibrosis [Unknown]
  - Rheumatic fever [Unknown]
  - Abdominal discomfort [Unknown]
  - Abdominal pain [Unknown]
  - Abdominal pain upper [Unknown]
  - Adverse drug reaction [Unknown]
  - Alopecia [Unknown]
  - Anti-cyclic citrullinated peptide antibody positive [Unknown]
  - Arthralgia [Unknown]
  - Arthropathy [Unknown]
  - Asthenia [Unknown]
  - Blepharospasm [Unknown]
  - Blister [Unknown]
  - Blood cholesterol increased [Unknown]
  - Bursitis [Unknown]
  - C-reactive protein increased [Unknown]
  - Condition aggravated [Unknown]
  - Confusional state [Unknown]
  - Depression [Unknown]
  - Diarrhoea [Unknown]
  - Discomfort [Unknown]
  - Dizziness [Unknown]
  - Drug intolerance [Unknown]
  - Dry mouth [Unknown]
  - Facet joint syndrome [Unknown]
  - Fatigue [Unknown]
  - Fibromyalgia [Unknown]
  - Folliculitis [Unknown]
  - Gastrooesophageal reflux disease [Unknown]
  - General physical health deterioration [Unknown]
  - Glossodynia [Unknown]
  - Helicobacter infection [Unknown]
  - Hepatic enzyme increased [Unknown]
  - Hypercholesterolaemia [Unknown]
  - Impaired healing [Unknown]
  - Inflammation [Unknown]
  - Infusion related reaction [Unknown]
  - Irritable bowel syndrome [Unknown]
  - Joint range of motion decreased [Unknown]
  - Joint swelling [Unknown]
  - Lip dry [Unknown]
  - Lung disorder [Unknown]
  - Memory impairment [Unknown]
  - Migraine [Unknown]
  - Muscle injury [Unknown]
  - Muscle spasms [Unknown]
  - Musculoskeletal pain [Unknown]
  - Nail disorder [Unknown]
  - Nasopharyngitis [Unknown]
  - Night sweats [Unknown]
  - Obesity [Unknown]
  - Osteoarthritis [Unknown]
  - Pain [Unknown]
  - Paraesthesia [Unknown]
  - Peripheral swelling [Unknown]
  - Peripheral venous disease [Unknown]
  - Rash [Unknown]
  - Stomatitis [Unknown]
  - Swelling [Unknown]
  - Synovitis [Unknown]
  - Taste disorder [Unknown]
  - Urticaria [Unknown]
  - Vomiting [Unknown]
  - Weight increased [Unknown]
  - Wheezing [Unknown]
  - Wound [Unknown]
  - Wound infection [Unknown]
  - Adjustment disorder with depressed mood [Unknown]
  - Amnesia [Unknown]
  - Back disorder [Unknown]
  - C-reactive protein abnormal [Unknown]
  - Chest pain [Unknown]
  - Contusion [Unknown]
  - Decreased appetite [Unknown]
  - Drug hypersensitivity [Unknown]
  - Dyspepsia [Unknown]
  - Dyspnoea [Unknown]
  - Fluid retention [Unknown]
  - Gait disturbance [Unknown]
  - Gait inability [Unknown]
  - Gastrointestinal disorder [Unknown]
  - General symptom [Unknown]
  - Grip strength decreased [Unknown]
  - Headache [Unknown]
  - Hypersensitivity [Unknown]
  - Hypertension [Unknown]
  - Hypoaesthesia [Unknown]
  - Ill-defined disorder [Unknown]
  - Infection [Unknown]
  - Injury [Unknown]
  - Malaise [Unknown]
  - Mobility decreased [Unknown]
  - Musculoskeletal stiffness [Unknown]
  - Myositis [Unknown]
  - Nausea [Unknown]
  - Oedema [Unknown]
  - Oedema peripheral [Unknown]
  - Pain in extremity [Unknown]
  - Pruritus [Unknown]
  - Psoriasis [Unknown]
  - Pustular psoriasis [Unknown]
  - Pyrexia [Unknown]
  - Rash vesicular [Unknown]
  - Rheumatoid factor positive [Unknown]
  - Sinusitis [Unknown]
  - Sleep disorder [Unknown]
  - Sleep disorder due to a general medical condition [Unknown]
  - Subcutaneous drug absorption impaired [Unknown]
  - Swollen joint count increased [Unknown]
  - Weight decreased [Unknown]
  - X-ray abnormal [Unknown]
  - Product quality issue [Unknown]
  - Intentional product use issue [Unknown]
  - Product use in unapproved indication [Unknown]
  - Drug ineffective [Unknown]
  - Maternal exposure during pregnancy [Unknown]
  - Off label use [Unknown]
